FAERS Safety Report 24415229 (Version 1)
Quarter: 2024Q4

REPORT INFORMATION
  Report Type: Spontaneous
  Country: GB (occurrence: GB)
  Receive Date: 20241009
  Receipt Date: 20241009
  Transmission Date: 20250115
  Serious: Yes (Other)
  Sender: BIOVITRUM
  Company Number: None

PATIENT
  Age: 40 Year
  Sex: Male
  Weight: 76 kg

DRUGS (2)
  1. AVATROMBOPAG [Suspect]
     Active Substance: AVATROMBOPAG
     Indication: Immune thrombocytopenia
     Dates: start: 202401
  2. MYCOPHENOLATE MOFETIL [Concomitant]
     Active Substance: MYCOPHENOLATE MOFETIL
     Indication: Adverse drug reaction
     Dates: start: 20221111

REACTIONS (1)
  - Myelofibrosis [Not Recovered/Not Resolved]

NARRATIVE: CASE EVENT DATE: 20240126
